FAERS Safety Report 13381252 (Version 1)
Quarter: 2017Q1

REPORT INFORMATION
  Report Type: Spontaneous
  Country: US (occurrence: US)
  Receive Date: 20170328
  Receipt Date: 20170328
  Transmission Date: 20170429
  Serious: Yes (Hospitalization, Disabling, Other)
  Sender: FDA-Public Use
  Company Number: None

PATIENT

DRUGS (1)
  1. PAMELOR [Suspect]
     Active Substance: NORTRIPTYLINE HYDROCHLORIDE
     Indication: ANXIETY
     Dosage: STANDAR DOSE MOUTH
     Route: 048
     Dates: start: 198910, end: 198910

REACTIONS (8)
  - Major depression [None]
  - Retinal tear [None]
  - Photosensitivity reaction [None]
  - Swelling face [None]
  - Vitreous detachment [None]
  - Idiopathic angioedema [None]
  - Angioedema [None]
  - Psychotic disorder [None]

NARRATIVE: CASE EVENT DATE: 198910
